FAERS Safety Report 6379233-3 (Version None)
Quarter: 2009Q3

REPORT INFORMATION
  Report Type: 
  Country: None (occurrence: None)
  Receive Date: 20090923
  Receipt Date: 20090923
  Transmission Date: 20100115
  Serious: Yes (Life-Threatening, Hospitalization)
  Sender: FDA-Public Use
  Company Number: None

PATIENT
  Sex: Female
  Weight: 42 kg

DRUGS (1)
  1. METHYLNALTREXONE 12 MG/0.6 ML WYETH [Suspect]
     Indication: CONSTIPATION
     Dosage: 8 MG XS 1 DOSE SQ
     Route: 058
     Dates: start: 20090915, end: 20090915

REACTIONS (3)
  - ASTHENIA [None]
  - INTESTINAL OBSTRUCTION [None]
  - INTESTINAL PERFORATION [None]
